FAERS Safety Report 7352513-0 (Version None)
Quarter: 2011Q1

REPORT INFORMATION
  Report Type: 
  Country: None (occurrence: None)
  Receive Date: 20110315
  Receipt Date: 20110307
  Transmission Date: 20110831
  Serious: Yes (Hospitalization)
  Sender: FDA-Public Use
  Company Number: FR-PFIZER INC-2011054515

PATIENT
  Age: 80 Year
  Sex: Male

DRUGS (5)
  1. ATARAX [Suspect]
     Indication: PREMEDICATION
     Dosage: 50 MG, DAILY
     Route: 042
     Dates: start: 20101221, end: 20101221
  2. FLUOROURACIL [Concomitant]
     Indication: CHEMOTHERAPY
     Dosage: UNK
     Dates: start: 20101214
  3. CARBOPLATIN [Concomitant]
     Indication: CHEMOTHERAPY
     Dosage: UNK
     Dates: start: 20101214
  4. ERBITUX [Suspect]
     Indication: TONGUE NEOPLASM MALIGNANT STAGE UNSPECIFIED
     Dosage: 400 MG/M2, UNK
     Route: 042
     Dates: start: 20101221, end: 20101221
  5. ERBITUX [Suspect]
     Indication: CHEMOTHERAPY

REACTIONS (2)
  - OXYGEN SATURATION DECREASED [None]
  - SOMNOLENCE [None]
